FAERS Safety Report 9352373 (Version 1)
Quarter: 2013Q2

REPORT INFORMATION
  Report Type: Spontaneous
  Country: US (occurrence: US)
  Receive Date: 20130617
  Receipt Date: 20130617
  Transmission Date: 20140414
  Serious: Yes (Other)
  Sender: FDA-Public Use
  Company Number: US-ELI_LILLY_AND_COMPANY-US201301000154

PATIENT
  Age: 88 Year
  Sex: Female

DRUGS (2)
  1. FORTEO [Suspect]
     Dosage: 20 UG, QD
     Route: 058
     Dates: start: 20121212
  2. COUMADIN [Concomitant]

REACTIONS (6)
  - Cerebrovascular accident [Not Recovered/Not Resolved]
  - Gastrointestinal haemorrhage [Unknown]
  - Nasopharyngitis [Unknown]
  - Malaise [Unknown]
  - Nausea [Unknown]
  - Muscle spasms [Unknown]
